FAERS Safety Report 14290542 (Version 1)
Quarter: 2017Q4

REPORT INFORMATION
  Report Type: Spontaneous
  Country: US (occurrence: US)
  Receive Date: 20171215
  Receipt Date: 20171215
  Transmission Date: 20180321
  Serious: Yes (Congenital Anomaly, Other)
  Sender: FDA-Public Use
  Company Number: PHHY2015US132461

PATIENT

DRUGS (1)
  1. ZOFRAN [Suspect]
     Active Substance: ONDANSETRON HYDROCHLORIDE
     Indication: FOETAL EXPOSURE DURING PREGNANCY
     Dosage: MOTHER DOSE: UNK
     Route: 064

REACTIONS (11)
  - Congenital arterial malformation [Unknown]
  - Foetal exposure during pregnancy [Unknown]
  - Necrotising colitis [Unknown]
  - Seizure [Unknown]
  - Injury [Unknown]
  - DiGeorge^s syndrome [Unknown]
  - Congenital pulmonary valve atresia [Unknown]
  - Ventricular septal defect [Unknown]
  - Fallot^s tetralogy [Unknown]
  - Gastrooesophageal reflux disease [Unknown]
  - Talipes [Unknown]
